FAERS Safety Report 5678736-4 (Version None)
Quarter: 2008Q1

REPORT INFORMATION
  Report Type: 
  Country: None (occurrence: None)
  Receive Date: 20080321
  Receipt Date: 20080305
  Transmission Date: 20080703
  Serious: Yes (Hospitalization, Other)
  Sender: FDA-Public Use
  Company Number: 177032

PATIENT
  Age: 52 Year
  Sex: Female
  Weight: 56.6996 kg

DRUGS (2)
  1. AVONEX [Suspect]
     Indication: MULTIPLE SCLEROSIS
     Dosage: 30 UG; QW; IM
     Route: 030
     Dates: start: 20000301
  2. ARICEPT [Concomitant]

REACTIONS (8)
  - BLINDNESS UNILATERAL [None]
  - DEMENTIA [None]
  - EYE HAEMORRHAGE [None]
  - IMPAIRED DRIVING ABILITY [None]
  - POST PROCEDURAL COMPLICATION [None]
  - RETINAL DETACHMENT [None]
  - SCAR [None]
  - STRESS [None]
